FAERS Safety Report 23578180 (Version 1)
Quarter: 2024Q1

REPORT INFORMATION
  Report Type: Spontaneous
  Country: GB (occurrence: GB)
  Receive Date: 20240229
  Receipt Date: 20240229
  Transmission Date: 20240410
  Serious: Yes (Other)
  Sender: FDA-Public Use
  Company Number: None

PATIENT
  Age: 71 Year
  Sex: Female
  Weight: 75 kg

DRUGS (4)
  1. EZETIMIBE [Suspect]
     Active Substance: EZETIMIBE
     Indication: Product used for unknown indication
     Dosage: 10 MILLIGRAM, QD (1 DAY) TABLET TO BE CRUSHED AND MIXED IN WA..
     Route: 065
     Dates: start: 20231023, end: 20240131
  2. Adcal [Concomitant]
     Indication: Product used for unknown indication
     Dosage: 2 DOSAGE FORM, QD (CHEWABLE TABLET TO HELP PREVENT OS...)
     Route: 048
     Dates: start: 20240131
  3. BECLOMETHASONE\FORMOTEROL [Concomitant]
     Active Substance: BECLOMETHASONE\FORMOTEROL
     Indication: Product used for unknown indication
     Dosage: 4 DOSAGE FORM, QD (PUFFS)
     Dates: start: 20230810
  4. ALBUTEROL [Concomitant]
     Active Substance: ALBUTEROL
     Indication: Product used for unknown indication
     Dosage: 8 DOSAGE FORM, PRN (AS NECESSARY) INHALE
     Dates: start: 20230810

REACTIONS (2)
  - Bronchospasm [Unknown]
  - Headache [Unknown]
